FAERS Safety Report 25388047 (Version 1)
Quarter: 2025Q2

REPORT INFORMATION
  Report Type: Report from Study
  Country: CA (occurrence: CA)
  Receive Date: 20250603
  Receipt Date: 20250603
  Transmission Date: 20250716
  Serious: Yes (Other)
  Sender: TOLMAR
  Company Number: CA-20250523-f1866a, TLM-2025-02542(0)

PATIENT
  Age: 65 Year
  Sex: Male

DRUGS (2)
  1. ELIGARD [Suspect]
     Active Substance: LEUPROLIDE ACETATE
     Indication: Prostate cancer
     Dosage: 45 MG, EVERY 6 MONTHS
     Route: 058
     Dates: start: 20250213
  2. ELIGARD [Suspect]
     Active Substance: LEUPROLIDE ACETATE
     Indication: Prostate cancer

REACTIONS (2)
  - Homicidal ideation [Unknown]
  - Affective disorder [Unknown]
